FAERS Safety Report 11206256 (Version 1)
Quarter: 2015Q2

REPORT INFORMATION
  Report Type: Spontaneous
  Country: CA (occurrence: CA)
  Receive Date: 20150622
  Receipt Date: 20150622
  Transmission Date: 20150821
  Serious: Yes (Other)
  Sender: FDA-Public Use
  Company Number: CA-RB PHARMACEUTICALS LIMITED-RB-080394-2015

PATIENT
  Age: 0 Year
  Sex: Male
  Weight: 2.32 kg

DRUGS (6)
  1. SUBOXONE [Suspect]
     Active Substance: BUPRENORPHINE HYDROCHLORIDE\NALOXONE HYDROCHLORIDE
     Indication: DRUG DEPENDENCE
     Dosage: 8 MG, QD
     Route: 064
     Dates: start: 2014, end: 2014
  2. SUBUTEX [Suspect]
     Active Substance: BUPRENORPHINE HYDROCHLORIDE
     Indication: DRUG DEPENDENCE
     Dosage: 16 MG, DAILY
     Route: 064
     Dates: start: 20141018, end: 20150407
  3. NICOTINE. [Suspect]
     Active Substance: NICOTINE
     Indication: PRODUCT USED FOR UNKNOWN INDICATION
     Dosage: 10 UNIT, UNK
     Route: 064
     Dates: start: 20140814
  4. HYDROMORPH CONTIN [Suspect]
     Active Substance: HYDROMORPHONE
     Indication: DRUG DEPENDENCE
     Dosage: 30-60 MG DAILY
     Route: 064
     Dates: start: 20140814, end: 2014
  5. HYDROMORPH CONTIN [Suspect]
     Active Substance: HYDROMORPHONE
     Dosage: 30-60 MG DAILY
     Route: 064
     Dates: start: 2014, end: 20141108
  6. NICOTINE. [Suspect]
     Active Substance: NICOTINE
     Dosage: 1-2 CIGARETTES PER DAY
     Route: 064
     Dates: end: 20150407

REACTIONS (3)
  - Foetal exposure during pregnancy [Recovered/Resolved]
  - Premature baby [Recovered/Resolved]
  - Duodenal atresia [Recovered/Resolved]

NARRATIVE: CASE EVENT DATE: 2014
